FAERS Safety Report 20810041 (Version 11)
Quarter: 2023Q4

REPORT INFORMATION
  Report Type: Spontaneous
  Country: US (occurrence: US)
  Receive Date: 20220510
  Receipt Date: 20231215
  Transmission Date: 20240110
  Serious: Yes (Hospitalization, Other)
  Sender: FDA-Public Use
  Company Number: US-PFIZER INC-202200631497

PATIENT
  Age: 67 Year
  Sex: Female

DRUGS (1)
  1. INLYTA [Suspect]
     Active Substance: AXITINIB
     Dosage: 5 MG

REACTIONS (10)
  - Nephrectomy [Unknown]
  - Neoplasm progression [Unknown]
  - Rash [Unknown]
  - Dry skin [Unknown]
  - Erythema [Unknown]
  - Fatigue [Unknown]
  - Nervousness [Unknown]
  - Illness [Not Recovered/Not Resolved]
  - Skin disorder [Unknown]
  - Rosacea [Unknown]
